FAERS Safety Report 6045477-3 (Version None)
Quarter: 2009Q1

REPORT INFORMATION
  Report Type: 
  Country: None (occurrence: None)
  Receive Date: 20090121
  Receipt Date: 20090112
  Transmission Date: 20090719
  Serious: Yes (Death, Hospitalization)
  Sender: FDA-Public Use
  Company Number: TR-ELI_LILLY_AND_COMPANY-TR200901002291

PATIENT
  Age: 59 Year
  Sex: Female

DRUGS (2)
  1. GEMZAR [Suspect]
     Dosage: 900 MG/M2, OVER 90 MIN ON DAY 1 AND 8
     Route: 042
  2. DOCETAXEL [Concomitant]
     Dosage: 100 MG/M2, OVER 1 HR ON DAY 8.
     Route: 042

REACTIONS (2)
  - ACUTE CORONARY SYNDROME [None]
  - DISEASE PROGRESSION [None]
